FAERS Safety Report 23150173 (Version 2)
Quarter: 2023Q4

REPORT INFORMATION
  Report Type: Spontaneous
  Country: TR (occurrence: TR)
  Receive Date: 20231106
  Receipt Date: 20231226
  Transmission Date: 20240110
  Serious: Yes (Hospitalization, Other)
  Sender: FDA-Public Use
  Company Number: TR-NOVOPROD-1134573

PATIENT
  Age: 3 Month
  Sex: Male
  Weight: 3.75 kg

DRUGS (3)
  1. LEVEMIR [Suspect]
     Active Substance: INSULIN DETEMIR
     Indication: Gestational diabetes
     Dosage: 6 IU, QD
     Route: 064
     Dates: end: 20230711
  2. NOVORAPID [Suspect]
     Active Substance: INSULIN ASPART
     Indication: Gestational diabetes
     Dosage: 4 IU, TID
     Route: 064
     Dates: end: 20230711
  3. REGENESIS MAX [Concomitant]
     Indication: Product used for unknown indication
     Dosage: UNK
     Route: 064

REACTIONS (3)
  - Neonatal infection [Recovered/Resolved]
  - Respiratory disorder neonatal [Recovered/Resolved]
  - Foetal exposure during pregnancy [Recovered/Resolved]
